FAERS Safety Report 4359779-X (Version None)
Quarter: 2004Q2

REPORT INFORMATION
  Report Type: 
  Country: None (occurrence: None)
  Receive Date: 20040518
  Receipt Date: 20040514
  Transmission Date: 20050107
  Serious: Yes (Other)
  Sender: FDA-Public Use
  Company Number: US-GLAXOSMITHKLINE-A0510934A

PATIENT
  Age: 31 Year
  Sex: Male

DRUGS (5)
  1. LAMICTAL [Suspect]
     Indication: BIPOLAR DISORDER
     Dosage: 200MG PER DAY
     Route: 048
  2. LITHIUM CARBONATE [Suspect]
  3. PROZAC [Concomitant]
  4. TOPROL-XL [Concomitant]
  5. PAIN MEDICATIONS [Concomitant]

REACTIONS (2)
  - CARDIOMYOPATHY [None]
  - VASCULITIS GASTROINTESTINAL [None]
